FAERS Safety Report 16478531 (Version 3)
Quarter: 2020Q1

REPORT INFORMATION
  Report Type: Spontaneous
  Country: US (occurrence: US)
  Receive Date: 20190626
  Receipt Date: 20200204
  Transmission Date: 20200409
  Serious: Yes (Other)
  Sender: FDA-Public Use
  Company Number: US-PFIZER INC-2018394809

PATIENT
  Age: 78 Year
  Sex: Male

DRUGS (1)
  1. VIAGRA [Suspect]
     Active Substance: SILDENAFIL CITRATE
     Indication: ERECTILE DYSFUNCTION
     Dosage: UNK

REACTIONS (5)
  - Erectile dysfunction [Unknown]
  - Ejaculation delayed [Unknown]
  - Therapeutic product effect incomplete [Unknown]
  - Dementia Alzheimer^s type [Unknown]
  - Blood testosterone decreased [Unknown]
